FAERS Safety Report 8303990-X (Version None)
Quarter: 2012Q2

REPORT INFORMATION
  Report Type: 
  Country: None (occurrence: None)
  Receive Date: 20120420
  Receipt Date: 20120420
  Transmission Date: 20120825
  Serious: Yes (Life-Threatening, Hospitalization)
  Sender: FDA-Public Use
  Company Number: None

PATIENT
  Age: 72 Year
  Sex: Male
  Weight: 91 kg

DRUGS (7)
  1. ZOCOR [Concomitant]
  2. ASPIRIN [Suspect]
     Dosage: 8 MG DAILY PO
     Route: 048
  3. CARDIZEM [Concomitant]
  4. METOPROLOL TARTRATE [Concomitant]
  5. PRADAXA [Suspect]
     Dosage: 150 MG BID PO
     Route: 048
     Dates: start: 20120204, end: 20120413
  6. LISINOPRIL [Concomitant]
  7. CLONIDINE [Concomitant]

REACTIONS (7)
  - ABDOMINAL PAIN [None]
  - RENAL FAILURE [None]
  - HAEMATEMESIS [None]
  - ACTIVATED PARTIAL THROMBOPLASTIN TIME PROLONGED [None]
  - RECTAL HAEMORRHAGE [None]
  - ASTHENIA [None]
  - INTERNATIONAL NORMALISED RATIO INCREASED [None]
